FAERS Safety Report 5951441-2 (Version None)
Quarter: 2008Q4

REPORT INFORMATION
  Report Type: 
  Country: None (occurrence: None)
  Receive Date: 20081111
  Receipt Date: 20081111
  Transmission Date: 20090506
  Serious: Yes (Hospitalization)
  Sender: FDA-Public Use
  Company Number: None

PATIENT
  Sex: Female
  Weight: 44 kg

DRUGS (5)
  1. LENALIDOMIDE [Suspect]
     Indication: HODGKIN'S DISEASE
     Dosage: 25 MG Q DAY
     Dates: start: 20080828
  2. ASPIRIN [Concomitant]
  3. FUROSEMIDE [Concomitant]
  4. BISACODYL [Concomitant]
  5. POTASSIUM CHLORIDE [Concomitant]

REACTIONS (5)
  - ASTHENIA [None]
  - DEHYDRATION [None]
  - DISEASE PROGRESSION [None]
  - DYSPHAGIA [None]
  - LYMPHADENOPATHY [None]
